FAERS Safety Report 13418454 (Version 3)
Quarter: 2017Q2

REPORT INFORMATION
  Report Type: Report from Study
  Country: US (occurrence: US)
  Receive Date: 20170406
  Receipt Date: 20170504
  Transmission Date: 20170830
  Serious: Yes (Hospitalization)
  Sender: FDA-Public Use
  Company Number: US-ACTELION-A-NJ2015-127196

PATIENT
  Age: 61 Year
  Sex: Female
  Weight: 70.3 kg

DRUGS (7)
  1. REMODULIN [Concomitant]
     Active Substance: TREPROSTINIL
  2. OPSUMIT [Suspect]
     Active Substance: MACITENTAN
     Dosage: 10 MG, QD
     Route: 048
  3. REVATIO [Concomitant]
     Active Substance: SILDENAFIL CITRATE
  4. WARFARIN [Concomitant]
     Active Substance: WARFARIN
  5. INFLUENZA VACCINE [Concomitant]
     Active Substance: INFLUENZA VIRUS VACCINE
     Dosage: UNK, SINGLE
     Dates: start: 201511, end: 201511
  6. OPSUMIT [Suspect]
     Active Substance: MACITENTAN
     Indication: PULMONARY ARTERIAL HYPERTENSION
     Dosage: 10 MG, QD
     Route: 048
     Dates: start: 20151109
  7. ADCIRCA [Concomitant]
     Active Substance: TADALAFIL

REACTIONS (15)
  - Infection [Unknown]
  - Productive cough [Unknown]
  - Fatigue [Unknown]
  - Catheter site pain [Unknown]
  - Cough [Unknown]
  - Pneumonia [Unknown]
  - Respiratory failure [Unknown]
  - Viral upper respiratory tract infection [Unknown]
  - General physical health deterioration [Unknown]
  - Pain in extremity [Unknown]
  - Swelling [Unknown]
  - Malaise [Unknown]
  - Catheter site infection [Unknown]
  - Catheter site haemorrhage [Unknown]
  - Catheter site vesicles [Unknown]
